FAERS Safety Report 9535525 (Version 2)
Quarter: 2014Q1

REPORT INFORMATION
  Report Type: Spontaneous
  Country: US (occurrence: US)
  Receive Date: 20130918
  Receipt Date: 20140109
  Transmission Date: 20141002
  Serious: No
  Sender: FDA-Public Use
  Company Number: US-B.I. PHARMACEUTICALS,INC./RIDGEFIELD-2013-BI-28432BP

PATIENT
  Age: 65 Year
  Sex: Female
  Weight: 63.5 kg

DRUGS (10)
  1. COMBIVENT [Suspect]
     Indication: CHRONIC OBSTRUCTIVE PULMONARY DISEASE
     Dosage: STRENGTH: 20 MCG / 100 MCG; DAILY DOSE: 80 MCG/ 400 MCG
     Route: 055
     Dates: start: 201304, end: 201306
  2. AZITHROMYCIN [Concomitant]
     Route: 048
  3. MONTELUKAST [Concomitant]
     Route: 048
  4. SIMVASTATIN [Concomitant]
     Route: 048
  5. POTASSIUM [Concomitant]
     Route: 048
  6. BISOPROLOL [Concomitant]
     Route: 048
  7. SYMBICORT [Concomitant]
     Route: 055
  8. ASPIRIN [Concomitant]
     Route: 048
  9. CETIRIZINE [Concomitant]
     Route: 048
  10. PROAIR [Concomitant]
     Route: 055

REACTIONS (4)
  - Drug effect decreased [Not Recovered/Not Resolved]
  - Drug effect delayed [Not Recovered/Not Resolved]
  - Decreased activity [Not Recovered/Not Resolved]
  - Drug ineffective [Recovered/Resolved]
